FAERS Safety Report 8491461-X (Version None)
Quarter: 2012Q3

REPORT INFORMATION
  Report Type: 
  Country: None (occurrence: None)
  Receive Date: 20120706
  Receipt Date: 20120629
  Transmission Date: 20120928
  Serious: Yes (Hospitalization)
  Sender: FDA-Public Use
  Company Number: JP-PFIZER INC-2012145621

PATIENT
  Age: 75 Year
  Sex: Female
  Weight: 39 kg

DRUGS (11)
  1. PROCYLIN [Concomitant]
     Indication: PULMONARY HYPERTENSION
     Dosage: UNK
     Route: 048
  2. ONE-ALPHA [Concomitant]
     Dosage: UNK
     Route: 048
  3. URSO 250 [Concomitant]
     Dosage: UNK
     Route: 048
  4. LASIX [Concomitant]
     Dosage: UNK
     Route: 048
  5. PREDNISOLONE SODIUM SUCCINATE INJ [Concomitant]
     Dosage: UNK
     Route: 048
  6. RABEPRAZOLE SODIUM [Concomitant]
     Dosage: UNK
     Route: 048
  7. ANPLAG [Concomitant]
     Dosage: UNK
     Route: 048
  8. REVATIO [Suspect]
     Indication: PULMONARY HYPERTENSION
     Dosage: 20 MG, 2X/DAY
     Route: 048
     Dates: start: 20100907, end: 20101019
  9. REVATIO [Suspect]
     Indication: COLLAGEN-VASCULAR DISEASE
     Dosage: 20 MG, 3X/DAY
     Route: 048
     Dates: start: 20101020, end: 20101207
  10. CANDESARTAN CILEXETIL [Concomitant]
     Dosage: UNK
     Route: 048
     Dates: end: 20110104
  11. MUCOSTA [Concomitant]
     Dosage: UNK
     Route: 048

REACTIONS (2)
  - PLEURAL EFFUSION [None]
  - PERICARDIAL EFFUSION [None]
